FAERS Safety Report 10332386 (Version 2)
Quarter: 2014Q4

REPORT INFORMATION
  Report Type: Spontaneous
  Country: BR (occurrence: BR)
  Receive Date: 20140722
  Receipt Date: 20141009
  Transmission Date: 20150528
  Serious: Yes (Hospitalization, Other)
  Sender: FDA-Public Use
  Company Number: BR-BRISTOL-MYERS SQUIBB COMPANY-21198379

PATIENT
  Age: 67 Year
  Sex: Male
  Weight: 77 kg

DRUGS (6)
  1. ATACAND [Suspect]
     Active Substance: CANDESARTAN CILEXETIL
     Dosage: 1DF=16UNITS NOS
     Route: 048
     Dates: start: 2011, end: 201404
  2. METFORMIN HCL [Suspect]
     Active Substance: METFORMIN HYDROCHLORIDE
     Route: 048
     Dates: start: 1998
  3. OMEPRAZOLE. [Suspect]
     Active Substance: OMEPRAZOLE
     Route: 048
  4. ANGIPRESS [Suspect]
     Active Substance: ATENOLOL
     Route: 048
     Dates: start: 2012
  5. DIOVAN HCT [Suspect]
     Active Substance: HYDROCHLOROTHIAZIDE\VALSARTAN
     Dosage: START DATE: 04-APR-2014
     Route: 048
     Dates: start: 1988
  6. INSULIN [Concomitant]
     Active Substance: INSULIN NOS

REACTIONS (4)
  - Cholecystectomy [Recovered/Resolved]
  - Blood triglycerides increased [Recovered/Resolved]
  - Hypertension [Recovering/Resolving]
  - Renal artery stenosis [Recovered/Resolved]

NARRATIVE: CASE EVENT DATE: 1998
